FAERS Safety Report 7858945-6 (Version None)
Quarter: 2011Q4

REPORT INFORMATION
  Report Type: 
  Country: None (occurrence: None)
  Receive Date: 20111027
  Receipt Date: 20111011
  Transmission Date: 20120403
  Serious: Yes (Hospitalization)
  Sender: FDA-Public Use
  Company Number: US-BAYER-2011-079520

PATIENT
  Age: 40 Year
  Sex: Female
  Weight: 81.633 kg

DRUGS (4)
  1. PHENTERMINE [Concomitant]
     Dosage: 37.5 MG, UNK
     Dates: start: 20070618
  2. YASMIN [Suspect]
     Indication: CONTRACEPTION
     Dosage: UNK
     Dates: start: 20070601, end: 20070917
  3. IMITREX [Concomitant]
     Dosage: UNK
     Dates: start: 20021001, end: 20081101
  4. HYDROCHLOROTHIAZIDE [Concomitant]
     Dosage: 25 MG, UNK
     Dates: start: 20070618

REACTIONS (9)
  - PULMONARY EMBOLISM [None]
  - MENTAL DISORDER [None]
  - DEEP VEIN THROMBOSIS [None]
  - PAIN [None]
  - EMOTIONAL DISTRESS [None]
  - PAIN IN EXTREMITY [None]
  - DYSPNOEA [None]
  - ANXIETY [None]
  - INJURY [None]
